FAERS Safety Report 4303492-1 (Version None)
Quarter: 2004Q1

REPORT INFORMATION
  Report Type: 
  Country: None (occurrence: None)
  Receive Date: 20040224
  Receipt Date: 20040224
  Transmission Date: 20041129
  Serious: Yes (Life-Threatening, Hospitalization)
  Sender: FDA-Public Use
  Company Number: None

PATIENT
  Sex: Female
  Weight: 47.6277 kg

DRUGS (2)
  1. ZOLOFT [Suspect]
     Indication: DEPRESSION
     Dosage: 300 MG DAILY ORAL
     Route: 048
     Dates: start: 20020201, end: 20040216
  2. SEROQUEL [Suspect]
     Indication: DEPRESSION
     Dosage: 100 MG HS ORAL
     Route: 048
     Dates: start: 20030801, end: 20040216

REACTIONS (2)
  - INTENTIONAL OVERDOSE [None]
  - MEDICATION ERROR [None]
